FAERS Safety Report 4808827-9 (Version None)
Quarter: 2005Q4

REPORT INFORMATION
  Report Type: 
  Country: None (occurrence: None)
  Receive Date: 20051021
  Receipt Date: 20021016
  Transmission Date: 20060501
  Serious: No
  Sender: FDA-Public Use
  Company Number: AU_021005575

PATIENT
  Age: 72 Year
  Sex: Male

DRUGS (1)
  1. ZYPREXA [Suspect]
     Indication: ACUTE PSYCHOSIS
     Dosage: 17.5 MG/DAY

REACTIONS (4)
  - ANAEMIA [None]
  - LETHARGY [None]
  - RED BLOOD CELL SEDIMENTATION RATE INCREASED [None]
  - WEIGHT DECREASED [None]
